FAERS Safety Report 12379448 (Version 1)
Quarter: 2016Q2

REPORT INFORMATION
  Report Type: Spontaneous
  Country: None (occurrence: US)
  Receive Date: 20160517
  Receipt Date: 20160517
  Transmission Date: 20160815
  Serious: No
  Sender: FDA-Public Use
  Company Number: US-TEIKOKU PHARMA USA-TPU2015-00355

PATIENT
  Sex: Female
  Weight: 72.64 kg

DRUGS (2)
  1. TOO MANY OTHER MEDICATIONS [Concomitant]
  2. LIDODERM [Suspect]
     Active Substance: LIDOCAINE
     Indication: MULTIPLE SCLEROSIS
     Route: 061
     Dates: start: 2006

REACTIONS (4)
  - Depression [Not Recovered/Not Resolved]
  - Insomnia [Not Recovered/Not Resolved]
  - Osteoarthritis [Not Recovered/Not Resolved]
  - Pain [Not Recovered/Not Resolved]

NARRATIVE: CASE EVENT DATE: 2008
